FAERS Safety Report 5119090-6 (Version None)
Quarter: 2006Q3

REPORT INFORMATION
  Report Type: 
  Country: None (occurrence: None)
  Receive Date: 20060927
  Receipt Date: 20060914
  Transmission Date: 20061208
  Serious: Yes (Other)
  Sender: FDA-Public Use
  Company Number: 2006112279

PATIENT
  Sex: Female

DRUGS (1)
  1. VISINE (OXYMETAZOLINE) [Suspect]
     Dosage: ONCE, ORAL
     Route: 048
     Dates: start: 20060913, end: 20060913

REACTIONS (2)
  - ACCIDENTAL EXPOSURE [None]
  - DIARRHOEA [None]
